FAERS Safety Report 23998100 (Version 1)
Quarter: 2024Q2

REPORT INFORMATION
  Report Type: Spontaneous
  Country: US (occurrence: US)
  Receive Date: 20240621
  Receipt Date: 20240621
  Transmission Date: 20240715
  Serious: Yes (Other)
  Sender: FDA-Public Use
  Company Number: US-AUROBINDO-AUR-APL-2024-029441

PATIENT
  Age: 87 Year
  Sex: Female

DRUGS (3)
  1. KETOCONAZOLE [Suspect]
     Active Substance: KETOCONAZOLE
     Indication: Hyperadrenocorticism
     Dosage: 200 MILLIGRAM, 3 TIMES A DAY
     Route: 065
  2. MIFEPRISTONE [Suspect]
     Active Substance: MIFEPRISTONE
     Indication: Hyperadrenocorticism
     Dosage: 300 MILLIGRAM, DAILY
     Route: 065
  3. METYRAPONE [Concomitant]
     Active Substance: METYRAPONE
     Indication: Hyperadrenocorticism
     Dosage: UNK
     Route: 065

REACTIONS (1)
  - Drug ineffective [Unknown]
